FAERS Safety Report 24605117 (Version 1)
Quarter: 2024Q4

REPORT INFORMATION
  Report Type: Spontaneous
  Country: US (occurrence: US)
  Receive Date: 20241111
  Receipt Date: 20241111
  Transmission Date: 20250114
  Serious: No
  Sender: PARATEK PHARMACEUTICALS
  Company Number: US-PARATEK PHARMACEUTICALS, INC.-2024PTK00234

PATIENT
  Age: 64 Year
  Sex: Male
  Weight: 61.224 kg

DRUGS (5)
  1. NUZYRA [Suspect]
     Active Substance: OMADACYCLINE
     Indication: Atypical mycobacterial infection
     Dosage: 450 MG, 1X/DAY
     Route: 048
     Dates: start: 20240219, end: 20240220
  2. NUZYRA [Suspect]
     Active Substance: OMADACYCLINE
     Indication: Mycobacterium abscessus infection
     Dosage: 300 MG, 1X/DAY IN THE MORNING
     Route: 048
     Dates: start: 20240221
  3. NUZYRA [Suspect]
     Active Substance: OMADACYCLINE
     Indication: Pneumonia bacterial
  4. AZITHROMYCIN [Concomitant]
     Active Substance: AZITHROMYCIN
  5. ARIKAYCE [Concomitant]
     Active Substance: AMIKACIN

REACTIONS (4)
  - Vomiting [Recovered/Resolved]
  - Constipation [Not Recovered/Not Resolved]
  - Incorrect product administration duration [Not Recovered/Not Resolved]
  - Off label use [Not Recovered/Not Resolved]

NARRATIVE: CASE EVENT DATE: 20240219
